FAERS Safety Report 24200725 (Version 1)
Quarter: 2024Q3

REPORT INFORMATION
  Report Type: Report from Study
  Country: US (occurrence: US)
  Receive Date: 20240812
  Receipt Date: 20240812
  Transmission Date: 20241016
  Serious: Yes (Other)
  Sender: OTSUKA
  Company Number: US-OTSUKA-2024_021696

PATIENT
  Age: 40 Year
  Sex: Female
  Weight: 70.75 kg

DRUGS (3)
  1. ARIPIPRAZOLE [Suspect]
     Active Substance: ARIPIPRAZOLE
     Indication: Bipolar disorder
     Dosage: 662 MG/MONTHLY
     Route: 065
     Dates: start: 20240506
  2. CHOLECALCIFEROL [Concomitant]
     Active Substance: CHOLECALCIFEROL
     Indication: Hypothyroidism
     Dosage: UNK
     Route: 065
     Dates: start: 20240506
  3. LEVOTHYROXINE [Concomitant]
     Active Substance: LEVOTHYROXINE\LEVOTHYROXINE SODIUM
     Indication: Vitamin D deficiency
     Dosage: UNK
     Route: 065
     Dates: start: 20240506

REACTIONS (5)
  - Foetal growth restriction [Recovered/Resolved]
  - Abortion spontaneous [Recovered/Resolved]
  - Human chorionic gonadotropin decreased [Recovered/Resolved]
  - Maternal exposure during pregnancy [Unknown]
  - Overdose [Unknown]

NARRATIVE: CASE EVENT DATE: 20240506
